FAERS Safety Report 6099728-X (Version None)
Quarter: 2009Q1

REPORT INFORMATION
  Report Type: 
  Country: None (occurrence: None)
  Receive Date: 20090303
  Receipt Date: 20090217
  Transmission Date: 20090719
  Serious: Yes (Death)
  Sender: FDA-Public Use
  Company Number: US-ROCHE-614333

PATIENT
  Sex: Female
  Weight: 63.5 kg

DRUGS (1)
  1. CAPECITABINE [Suspect]
     Indication: BREAST CANCER
     Dosage: THERAPY: TWO WEEKS ON AND ONE WEEK OFF
     Route: 048
     Dates: start: 20080101, end: 20081001

REACTIONS (1)
  - DEATH [None]
